FAERS Safety Report 20505265 (Version 1)
Quarter: 2022Q1

REPORT INFORMATION
  Report Type: Spontaneous
  Country: US (occurrence: US)
  Receive Date: 20220223
  Receipt Date: 20220223
  Transmission Date: 20220423
  Serious: Yes (Death, Life-Threatening, Hospitalization, Other)
  Sender: FDA-Public Use
  Company Number: US-MLMSERVICE-20220208-3363927-1

PATIENT
  Age: 57 Year
  Sex: Male

DRUGS (10)
  1. DEXAMETHASONE [Suspect]
     Active Substance: DEXAMETHASONE
     Indication: COVID-19
     Dosage: 6 MILLIGRAM, ONCE A DAY
     Route: 048
     Dates: start: 202101, end: 2021
  2. METHYLPREDNISOLONE [Suspect]
     Active Substance: METHYLPREDNISOLONE
     Indication: COVID-19
     Dosage: 40 MILLIGRAM, 3 TIMES A DAY
     Route: 065
     Dates: start: 2021, end: 2021
  3. HYDROCORTISONE [Suspect]
     Active Substance: HYDROCORTISONE
     Indication: COVID-19
     Dosage: 100 MILLIGRAM, 3 TIMES A DAY
     Route: 042
     Dates: start: 2021
  4. MIDODRINE [Concomitant]
     Active Substance: MIDODRINE
     Indication: COVID-19
     Dosage: 10 MILLIGRAM, 3 TIMES A DAY
     Route: 065
     Dates: start: 2021
  5. AZITHROMYCIN [Concomitant]
     Active Substance: AZITHROMYCIN
     Indication: Staphylococcal infection
     Dosage: 500 MILLIGRAM, ONCE A DAY
     Route: 042
     Dates: start: 202101, end: 2021
  6. NYSTATIN [Concomitant]
     Active Substance: NYSTATIN
     Indication: Colitis
     Dosage: 1000000 INTERNATIONAL UNIT, EVERY FOUR HOUR (VIA GASTROSTOMY TUBE)
     Route: 065
     Dates: start: 2021, end: 2021
  7. NYSTATIN [Concomitant]
     Active Substance: NYSTATIN
     Indication: Candida infection
  8. CEFTRIAXONE [Concomitant]
     Active Substance: CEFTRIAXONE
     Indication: Staphylococcal infection
     Dosage: 1 GRAM, ONCE A DAY
     Route: 065
     Dates: start: 202101, end: 2021
  9. VANCOMYCIN [Concomitant]
     Active Substance: VANCOMYCIN
     Indication: Evidence based treatment
     Dosage: UNK
     Route: 065
     Dates: start: 2021, end: 2021
  10. MEROPENEM [Concomitant]
     Active Substance: MEROPENEM
     Indication: Evidence based treatment
     Dosage: UNK
     Route: 065
     Dates: start: 2021, end: 2021

REACTIONS (3)
  - Hypotension [Fatal]
  - Cryptococcal meningoencephalitis [Fatal]
  - Disseminated cryptococcosis [Fatal]

NARRATIVE: CASE EVENT DATE: 20210101
